FAERS Safety Report 7796920-0 (Version None)
Quarter: 2011Q4

REPORT INFORMATION
  Report Type: 
  Country: None (occurrence: None)
  Receive Date: 20111005
  Receipt Date: 20110929
  Transmission Date: 20120403
  Serious: Yes (Hospitalization)
  Sender: FDA-Public Use
  Company Number: CH-AMGEN-CHESP2011046193

PATIENT
  Age: 56 Year
  Sex: Male

DRUGS (1)
  1. NEUPOGEN [Suspect]
     Indication: LEUKAPHERESIS
     Dosage: 1 DF, QD
     Route: 042
     Dates: start: 20110601, end: 20110601

REACTIONS (6)
  - ANGINA PECTORIS [None]
  - VASOSPASM [None]
  - TROPONIN T INCREASED [None]
  - ABDOMINAL PAIN [None]
  - MYOCARDITIS [None]
  - CHEST PAIN [None]
